FAERS Safety Report 9460341 (Version 2)
Quarter: 2013Q4

REPORT INFORMATION
  Report Type: Spontaneous
  Country: IT (occurrence: IT)
  Receive Date: 20130815
  Receipt Date: 20131004
  Transmission Date: 20140711
  Serious: Yes (Other)
  Sender: FDA-Public Use
  Company Number: IT-ACTAVIS-2013-14691

PATIENT
  Age: 85 Year
  Sex: Female

DRUGS (2)
  1. ZOLPIDEM TARTRATE (UNKNOWN) [Suspect]
     Indication: PRODUCT USED FOR UNKNOWN INDICATION
     Dosage: 1 DF, DAILY
     Route: 048
     Dates: start: 20130422, end: 20130521
  2. QUETIAPINE FUMARATE [Suspect]
     Indication: PRODUCT USED FOR UNKNOWN INDICATION
     Dosage: 25 MG, DAILY
     Route: 048
     Dates: start: 20130422, end: 20130521

REACTIONS (3)
  - Sopor [Recovering/Resolving]
  - Hallucination, auditory [Recovering/Resolving]
  - Headache [Recovering/Resolving]
